FAERS Safety Report 9785601 (Version 1)
Quarter: 2013Q4

REPORT INFORMATION
  Report Type: Spontaneous
  Country: US (occurrence: None)
  Receive Date: 20131226
  Receipt Date: 20131226
  Transmission Date: 20140711
  Serious: Yes (Other)
  Sender: FDA-Public Use
  Company Number: None

PATIENT
  Age: 28 Year
  Sex: Male
  Weight: 45.36 kg

DRUGS (1)
  1. WAL ITIN [Suspect]
     Indication: RHINORRHOEA
     Dosage: 1 PILL A DAY  ONCE DAILY  TAKEN BY MOUTH
     Route: 048
     Dates: start: 20131223

REACTIONS (1)
  - Epistaxis [None]
